FAERS Safety Report 8392196-4 (Version None)
Quarter: 2012Q2

REPORT INFORMATION
  Report Type: 
  Country: None (occurrence: None)
  Receive Date: 20120529
  Receipt Date: 20120521
  Transmission Date: 20120825
  Serious: Yes (Hospitalization)
  Sender: FDA-Public Use
  Company Number: US-ROCHE-1071162

PATIENT
  Age: 59 Year
  Sex: Female

DRUGS (9)
  1. CARMUSTINE AND POLIFEPROSAN 20 [Suspect]
     Indication: GLIOBLASTOMA
  2. PHENYTOIN [Concomitant]
     Dosage: AT BEDTIME
  3. AVASTIN [Suspect]
     Indication: GLIOBLASTOMA
  4. KEPPRA [Concomitant]
  5. DEXAMETHASONE [Concomitant]
     Dosage: DAILY
  6. METOPROLOL SUCCINATE [Concomitant]
     Dosage: AT BEDTIMES
  7. ZOFRAN [Concomitant]
  8. TEMODAR [Concomitant]
     Dosage: 1-5 OF 28 DAY CYCLE
  9. PANTOPRAZOLE [Concomitant]
     Dosage: DAILY

REACTIONS (1)
  - GRAND MAL CONVULSION [None]
